FAERS Safety Report 17008051 (Version 2)
Quarter: 2020Q1

REPORT INFORMATION
  Report Type: Report from Study
  Country: None (occurrence: US)
  Receive Date: 20191108
  Receipt Date: 20200202
  Transmission Date: 20200409
  Serious: Yes (Congenital Anomaly, Other)
  Sender: FDA-Public Use
  Company Number: US-ABBVIE-19K-163-2985936-00

PATIENT
  Age: 63 Year
  Sex: Male
  Weight: 113.5 kg

DRUGS (10)
  1. BABY ASPIRIN [Concomitant]
     Active Substance: ASPIRIN
     Indication: MYOCARDIAL INFARCTION
  2. GLIPIZIDE. [Concomitant]
     Active Substance: GLIPIZIDE
     Indication: DIABETES MELLITUS
  3. ATORVASTATIN [Concomitant]
     Active Substance: ATORVASTATIN
     Indication: BLOOD PRESSURE MEASUREMENT
  4. METOPROLOL. [Concomitant]
     Active Substance: METOPROLOL
     Indication: BLOOD CHOLESTEROL
  5. INSULIN [Concomitant]
     Active Substance: INSULIN NOS
     Indication: DIABETES MELLITUS
  6. METFORMIN [Concomitant]
     Active Substance: METFORMIN HYDROCHLORIDE
     Indication: DIABETES MELLITUS
  7. LISINOPRIL. [Concomitant]
     Active Substance: LISINOPRIL
     Indication: BLOOD CHOLESTEROL
  8. HUMIRA [Suspect]
     Active Substance: ADALIMUMAB
     Route: 058
     Dates: start: 20190903, end: 20191018
  9. HUMIRA [Suspect]
     Active Substance: ADALIMUMAB
     Indication: PSORIASIS
     Route: 058
     Dates: start: 20190516, end: 20190724
  10. PANTOPRAZOLE [Concomitant]
     Active Substance: PANTOPRAZOLE
     Indication: ANTACID THERAPY

REACTIONS (17)
  - Peripheral swelling [Recovering/Resolving]
  - Localised infection [Recovered/Resolved]
  - Skin discolouration [Recovering/Resolving]
  - Skin mass [Unknown]
  - Axillary mass [Recovered/Resolved]
  - Secretion discharge [Recovered/Resolved]
  - Pain [Recovering/Resolving]
  - Skin discolouration [Not Recovered/Not Resolved]
  - Staphylococcal infection [Recovering/Resolving]
  - Localised infection [Not Recovered/Not Resolved]
  - Adverse drug reaction [Unknown]
  - Staphylococcal infection [Recovering/Resolving]
  - Limb mass [Recovering/Resolving]
  - Scab [Recovered/Resolved]
  - Axillary mass [Recovered/Resolved]
  - Mass [Recovered/Resolved]
  - Blood glucose increased [Recovering/Resolving]

NARRATIVE: CASE EVENT DATE: 2019
